FAERS Safety Report 8465304-4 (Version None)
Quarter: 2012Q2

REPORT INFORMATION
  Report Type: 
  Country: None (occurrence: None)
  Receive Date: 20120626
  Receipt Date: 20120619
  Transmission Date: 20120825
  Serious: Yes (Other)
  Sender: FDA-Public Use
  Company Number: BR-PFIZER INC-2012147461

PATIENT
  Age: 47 Year
  Sex: Female
  Weight: 80 kg

DRUGS (11)
  1. MIOSAN CAF [Concomitant]
     Indication: PAIN
     Dosage: UNK
     Dates: start: 20081201
  2. LOTAR [Concomitant]
     Indication: HYPERTENSION
     Dosage: UNK
     Dates: start: 20100101
  3. AMYTRIL [Concomitant]
     Indication: LIMB INJURY
  4. DIMETICONE [Concomitant]
     Indication: FLATULENCE
     Dosage: UNK
     Dates: start: 20080601
  5. OMEPRAZOLE [Concomitant]
     Indication: GASTRIC DISORDER
     Dosage: UNK
     Dates: start: 20090101
  6. TRAMADOL HYDROCHLORIDE [Concomitant]
     Indication: LIMB INJURY
  7. LYRICA [Suspect]
     Dosage: UNK
     Route: 048
     Dates: start: 20080101
  8. TRAMADOL HYDROCHLORIDE [Concomitant]
     Indication: PAIN
     Dosage: UNK
     Dates: start: 20081201
  9. AMYTRIL [Concomitant]
     Indication: PAIN
     Dosage: UNK
     Dates: start: 20080101
  10. SIMVASTATIN [Concomitant]
     Indication: BLOOD CHOLESTEROL
     Dosage: UNK
     Dates: start: 20100101
  11. MIOSAN CAF [Concomitant]
     Indication: LIMB INJURY

REACTIONS (4)
  - SPINAL DISORDER [None]
  - GASTRIC DISORDER [None]
  - VISUAL IMPAIRMENT [None]
  - VISUAL ACUITY REDUCED [None]
